FAERS Safety Report 13228622 (Version 1)
Quarter: 2017Q1

REPORT INFORMATION
  Report Type: Spontaneous
  Country: US (occurrence: US)
  Receive Date: 20170213
  Receipt Date: 20170213
  Transmission Date: 20170428
  Serious: No
  Sender: FDA-Public Use
  Company Number: US-ROCHE-1861276

PATIENT
  Age: 10 Year
  Sex: Female

DRUGS (7)
  1. TACROLIMUS. [Concomitant]
     Active Substance: TACROLIMUS
     Route: 061
  2. MONTELUKAST [Concomitant]
     Active Substance: MONTELUKAST SODIUM
  3. OMALIZUMAB [Suspect]
     Active Substance: OMALIZUMAB
     Indication: DERMATITIS ATOPIC
     Dosage: 2 INJECTIONS
     Route: 058
  4. HYDROXYZINE [Concomitant]
     Active Substance: HYDROXYZINE HYDROCHLORIDE
  5. SULFAMETHOXAZOLE/TRIMETHOPRIM [Concomitant]
     Active Substance: SULFAMETHOXAZOLE\TRIMETHOPRIM
  6. TRIAMCINOLONE [Concomitant]
     Active Substance: TRIAMCINOLONE
  7. OMALIZUMAB [Suspect]
     Active Substance: OMALIZUMAB
     Dosage: DOSE INCREASED - 3 INJECTIONS
     Route: 058

REACTIONS (2)
  - Off label use [Unknown]
  - No adverse event [Unknown]
